FAERS Safety Report 7479445-1 (Version None)
Quarter: 2011Q2

REPORT INFORMATION
  Report Type: 
  Country: None (occurrence: None)
  Receive Date: 20110513
  Receipt Date: 20110505
  Transmission Date: 20111010
  Serious: Yes (Hospitalization, Other)
  Sender: FDA-Public Use
  Company Number: US-ABBOTT-11P-163-0724597-00

PATIENT
  Age: 60 Year

DRUGS (2)
  1. CITALOPRAM HYDROBROMIDE [Concomitant]
     Indication: DEPRESSION
  2. HUMIRA [Suspect]
     Indication: CROHN'S DISEASE
     Dates: start: 20090723

REACTIONS (6)
  - INJECTION SITE NODULE [None]
  - VITAMIN D DECREASED [None]
  - INJECTION SITE REACTION [None]
  - INJECTION SITE WARMTH [None]
  - GASTROINTESTINAL INFLAMMATION [None]
  - INJECTION SITE OEDEMA [None]
